FAERS Safety Report 21599163 (Version 2)
Quarter: 2022Q4

REPORT INFORMATION
  Report Type: Spontaneous
  Country: CN (occurrence: CN)
  Receive Date: 20221115
  Receipt Date: 20221130
  Transmission Date: 20230113
  Serious: Yes (Hospitalization, Other)
  Sender: FDA-Public Use
  Company Number: CN-009507513-2211CHN003085

PATIENT
  Age: 80 Year
  Sex: Male
  Weight: 70 kg

DRUGS (1)
  1. CILASTATIN SODIUM\IMIPENEM [Suspect]
     Active Substance: CILASTATIN SODIUM\IMIPENEM
     Indication: Biliary tract infection
     Dosage: 1 G, Q8H
     Route: 041
     Dates: start: 20221031, end: 20221102

REACTIONS (2)
  - Delirium [Recovering/Resolving]
  - Irritability [Recovering/Resolving]

NARRATIVE: CASE EVENT DATE: 20221102
